FAERS Safety Report 16959337 (Version 1)
Quarter: 2019Q4

REPORT INFORMATION
  Report Type: Spontaneous
  Country: DE (occurrence: DE)
  Receive Date: 20191025
  Receipt Date: 20191025
  Transmission Date: 20200122
  Serious: No
  Sender: FDA-Public Use
  Company Number: DE-LUPIN PHARMACEUTICALS INC.-2018-09053

PATIENT
  Age: 61 Year
  Sex: Male

DRUGS (2)
  1. FLUOCINOLONE [Suspect]
     Active Substance: FLUOCINOLONE
     Indication: DIABETIC RETINAL OEDEMA
     Dosage: UNK
     Route: 065
     Dates: start: 20140317
  2. FLUOCINOLONE [Suspect]
     Active Substance: FLUOCINOLONE
     Dosage: UNK
     Route: 065
     Dates: start: 20170411

REACTIONS (1)
  - Intraocular pressure increased [Recovering/Resolving]
